FAERS Safety Report 7774287-1 (Version None)
Quarter: 2011Q3

REPORT INFORMATION
  Report Type: 
  Country: None (occurrence: None)
  Receive Date: 20110923
  Receipt Date: 20110913
  Transmission Date: 20111222
  Serious: Yes (Other)
  Sender: FDA-Public Use
  Company Number: US-PFIZER INC-2011186153

PATIENT
  Age: 6 Year
  Sex: Female
  Weight: 26.3 kg

DRUGS (4)
  1. ZOFRAN [Concomitant]
     Indication: VOMITING
  2. SEPTRA [Concomitant]
     Indication: ANTIFUNGAL PROPHYLAXIS
     Dosage: 200-40MG/5 ML TAKE 10 ML 2X/DAY FRIDAY/SATURDAY/SUNDAY
     Dates: start: 20090901
  3. CRIZOTINIB [Suspect]
     Indication: ANAPLASTIC LARGE CELL LYMPHOMA T- AND NULL-CELL TYPES
     Dosage: 165 MG/M2, 2X/DAY
     Route: 048
     Dates: start: 20101117
  4. ZOFRAN [Concomitant]
     Indication: NAUSEA
     Dosage: 4 MG, Q 6H AS NEEDED
     Route: 048
     Dates: start: 20090901

REACTIONS (1)
  - KIDNEY ENLARGEMENT [None]
